FAERS Safety Report 23310248 (Version 1)
Quarter: 2023Q4

REPORT INFORMATION
  Report Type: Spontaneous
  Country: NL (occurrence: NL)
  Receive Date: 20231218
  Receipt Date: 20231218
  Transmission Date: 20240110
  Serious: Yes (Hospitalization)
  Sender: FDA-Public Use
  Company Number: NL-JNJFOC-20231156398

PATIENT
  Age: 62 Year
  Sex: Male

DRUGS (11)
  1. ARIPIPRAZOLE [Suspect]
     Active Substance: ARIPIPRAZOLE
     Indication: Product used for unknown indication
     Dosage: 10 MILLIGRAM
     Route: 065
  2. INVEGA [Suspect]
     Active Substance: PALIPERIDONE
     Indication: Product used for unknown indication
     Dosage: 3 MILLIGRAM, QD
     Route: 048
  3. INVEGA [Suspect]
     Active Substance: PALIPERIDONE
     Dosage: 6 MILLIGRAM, QD
     Route: 048
  4. INVEGA [Suspect]
     Active Substance: PALIPERIDONE
     Dosage: 6 MILLIGRAM, QD
     Route: 048
  5. RISPERDAL [Suspect]
     Active Substance: RISPERIDONE
     Indication: Product used for unknown indication
     Dosage: 4 MILLIGRAM
     Route: 065
  6. PRAVASTATIN [Concomitant]
     Active Substance: PRAVASTATIN
     Dosage: 40 MILLIGRAM
     Route: 065
  7. TEMAZEPAM [Concomitant]
     Active Substance: TEMAZEPAM
     Dosage: 20 MILLIGRAM
     Route: 065
  8. LITHIUM [Concomitant]
     Active Substance: LITHIUM
     Dosage: 600 MILLIGRAM
     Route: 065
  9. EUTHYROX [Concomitant]
     Active Substance: LEVOTHYROXINE SODIUM
     Dosage: 25 MILLIGRAM, 25MG 1DD 2,5
     Route: 065
  10. LORAZEPAM [Concomitant]
     Active Substance: LORAZEPAM
     Dosage: 1 MILLIGRAM
     Route: 065
  11. AKINETON [Concomitant]
     Active Substance: BIPERIDEN HYDROCHLORIDE
     Dosage: 2 MILLIGRAM, 2MG 3DD1
     Route: 065

REACTIONS (3)
  - Hospitalisation [Unknown]
  - Psychotic disorder [Not Recovered/Not Resolved]
  - Drug ineffective [Unknown]
